FAERS Safety Report 25225285 (Version 1)
Quarter: 2025Q2

REPORT INFORMATION
  Report Type: Spontaneous
  Country: IN (occurrence: IN)
  Receive Date: 20250422
  Receipt Date: 20250422
  Transmission Date: 20250716
  Serious: Yes (Hospitalization, Other)
  Sender: SANOFI AVENTIS
  Company Number: IN-DialogSolutions-SAAVPROD-PI760702-C1

PATIENT
  Age: 75 Year
  Sex: Male

DRUGS (5)
  1. ENOXAPARIN SODIUM [Suspect]
     Active Substance: ENOXAPARIN SODIUM
     Indication: Acute coronary syndrome
     Route: 058
  2. CLOPIDOGREL BISULFATE [Suspect]
     Active Substance: CLOPIDOGREL BISULFATE
     Indication: Acute coronary syndrome
     Route: 048
  3. ASPIRIN [Suspect]
     Active Substance: ASPIRIN
     Indication: Acute coronary syndrome
     Route: 048
  4. ASPIRIN [Suspect]
     Active Substance: ASPIRIN
  5. ATORVASTATIN [Concomitant]
     Active Substance: ATORVASTATIN
     Indication: Acute coronary syndrome
     Route: 048

REACTIONS (8)
  - Left ventricular dysfunction [Unknown]
  - Vascular compression [Unknown]
  - Tracheal compression [Unknown]
  - Oesophageal intramural haematoma [Recovered/Resolved]
  - Haematemesis [Recovered/Resolved]
  - Dysphagia [Recovered/Resolved]
  - Mass [Recovered/Resolved]
  - Oesophageal dilatation [Recovered/Resolved]
